FAERS Safety Report 9199522 (Version 1)
Quarter: 2013Q1

REPORT INFORMATION
  Report Type: Report from Study
  Country: JP (occurrence: JP)
  Receive Date: 20130329
  Receipt Date: 20130329
  Transmission Date: 20140127
  Serious: Yes (Hospitalization)
  Sender: FDA-Public Use
  Company Number: JP-ASTELLAS-2013JP000209

PATIENT
  Age: 84 Year
  Sex: Male
  Weight: 53.5 kg

DRUGS (2)
  1. MIRABEGRON [Suspect]
     Indication: HYPERTONIC BLADDER
     Dosage: 25 MG, UID/QD
     Route: 048
     Dates: start: 20121005, end: 20121101
  2. FLIVAS [Concomitant]
     Indication: BENIGN PROSTATIC HYPERPLASIA
     Dosage: 75 MG, UNKNOWN/D
     Route: 048
     Dates: end: 20121215

REACTIONS (2)
  - Haematuria [Recovered/Resolved]
  - Bladder tamponade [Recovered/Resolved]
